FAERS Safety Report 17703759 (Version 2)
Quarter: 2020Q3

REPORT INFORMATION
  Report Type: Report from Study
  Country: US (occurrence: US)
  Receive Date: 20200424
  Receipt Date: 20200910
  Transmission Date: 20201102
  Serious: Yes (Hospitalization, Other)
  Sender: FDA-Public Use
  Company Number: US-GLAXOSMITHKLINE-US2020GSK067515

PATIENT
  Age: 49 Year
  Sex: Female
  Weight: 50.5 kg

DRUGS (2)
  1. DOSTARLIMAB [Suspect]
     Active Substance: DOSTARLIMAB
     Indication: CERVIX CARCINOMA
     Dosage: 500 MG, Z (EVERY 21 DAYS)
     Route: 042
     Dates: start: 20200312
  2. NIRAPARIB [Suspect]
     Active Substance: NIRAPARIB
     Indication: CERVIX CARCINOMA
     Dosage: 200 MG, QD
     Route: 048
     Dates: start: 20200312

REACTIONS (3)
  - Sepsis [Unknown]
  - Nausea [Recovered/Resolved]
  - Vomiting [Recovered/Resolved]

NARRATIVE: CASE EVENT DATE: 20200402
